FAERS Safety Report 6595755-4 (Version None)
Quarter: 2010Q1

REPORT INFORMATION
  Report Type: 
  Country: None (occurrence: None)
  Receive Date: 20100219
  Receipt Date: 20100219
  Transmission Date: 20100710
  Serious: No
  Sender: FDA-Public Use
  Company Number: None

PATIENT
  Sex: Female
  Weight: 63.5036 kg

DRUGS (1)
  1. SIMVASTATIN [Suspect]
     Indication: MYOCARDIAL INFARCTION
     Dosage: 20 MG DAILY PO PRIOR USE?
     Route: 048
     Dates: start: 20060101, end: 20100101

REACTIONS (2)
  - ASTHENIA [None]
  - FATIGUE [None]
